FAERS Safety Report 7347201-0 (Version None)
Quarter: 2011Q1

REPORT INFORMATION
  Report Type: 
  Country: None (occurrence: None)
  Receive Date: 20110311
  Receipt Date: 20110309
  Transmission Date: 20110831
  Serious: Yes (Hospitalization, Other)
  Sender: FDA-Public Use
  Company Number: IT-PFIZER INC-2011043757

PATIENT
  Age: 58 Year
  Sex: Female

DRUGS (7)
  1. ALPRAZOLAM [Concomitant]
     Dosage: DROPS, 5 DOSAGE UNIT
     Route: 048
  2. MODURETIC ^MERCK^ [Suspect]
     Indication: HYPERTENSION
     Dosage: 5 MG + 50 MG, 0.25 DOSAGE UNIT
     Route: 048
     Dates: start: 20110217, end: 20110223
  3. DEPAKENE [Suspect]
     Dosage: 500 MG, 1 DOSAGE UNIT
     Route: 048
     Dates: start: 20110217, end: 20110223
  4. PROZAC [Concomitant]
     Dosage: 20 MG, 2 DOSAGE UNIT
     Route: 048
  5. CARDURA [Suspect]
     Dosage: 4 MG, 1 DOSAGE UNIT
     Route: 048
     Dates: start: 20110217, end: 20110223
  6. DEPAKENE [Suspect]
     Dosage: 250 MG, 1 DOSAGE UNIT
     Route: 048
     Dates: start: 20110202, end: 20110216
  7. DELORAZEPAM [Concomitant]
     Dosage: 20 DROPS
     Route: 048

REACTIONS (8)
  - SYNCOPE [None]
  - HYPONATRAEMIA [None]
  - NAUSEA [None]
  - VOMITING [None]
  - HYPERCHLORHYDRIA [None]
  - PRESYNCOPE [None]
  - DYSPEPSIA [None]
  - BLOOD CREATINE PHOSPHOKINASE INCREASED [None]
